FAERS Safety Report 6101760-4 (Version None)
Quarter: 2009Q1

REPORT INFORMATION
  Report Type: 
  Country: None (occurrence: None)
  Receive Date: 20090304
  Receipt Date: 20090302
  Transmission Date: 20090719
  Serious: Yes (Hospitalization)
  Sender: FDA-Public Use
  Company Number: D0060688A

PATIENT
  Age: 40 Year
  Sex: Male
  Weight: 88 kg

DRUGS (4)
  1. LAMOTRIGINE [Suspect]
     Dosage: 100MG TWICE PER DAY
     Route: 048
  2. CARBOPLATIN [Suspect]
     Indication: SEMINOMA
     Dosage: 630MG PER DAY
     Route: 065
     Dates: start: 20090217
  3. DEXAMETHASONE TAB [Suspect]
     Dosage: 8MG PER DAY
     Route: 042
     Dates: start: 20090217
  4. ONDANSETRON [Suspect]
     Dosage: 8MG PER DAY
     Route: 042
     Dates: start: 20090217

REACTIONS (2)
  - CONVULSION [None]
  - DRUG INTERACTION [None]
